FAERS Safety Report 17883627 (Version 2)
Quarter: 2022Q3

REPORT INFORMATION
  Report Type: Spontaneous
  Country: US (occurrence: US)
  Receive Date: 20200611
  Receipt Date: 20220814
  Transmission Date: 20221026
  Serious: Yes (Hospitalization, Other)
  Sender: FDA-Public Use
  Company Number: US-DRREDDYS-USA/USA/20/0123997

PATIENT
  Age: 63 Year
  Sex: Male

DRUGS (6)
  1. ZIPRASIDONE [Interacting]
     Active Substance: ZIPRASIDONE
     Indication: Depression
     Route: 048
  2. BUPROPION [Interacting]
     Active Substance: BUPROPION
     Indication: Depression
     Route: 048
  3. BUSPIRONE [Interacting]
     Active Substance: BUSPIRONE HYDROCHLORIDE
     Indication: Depression
     Route: 048
  4. DESVENLAFAXINE [Interacting]
     Active Substance: DESVENLAFAXINE
     Indication: Depression
     Route: 048
  5. TRAZODONE [Interacting]
     Active Substance: TRAZODONE HYDROCHLORIDE
     Indication: Depression
     Route: 048
  6. HERBALS\MITRAGYNINE [Interacting]
     Active Substance: HERBALS\MITRAGYNINE
     Indication: Depression

REACTIONS (2)
  - Drug interaction [Unknown]
  - Serotonin syndrome [Recovering/Resolving]
